FAERS Safety Report 12811847 (Version 3)
Quarter: 2017Q4

REPORT INFORMATION
  Report Type: Spontaneous
  Country: US (occurrence: US)
  Receive Date: 20161005
  Receipt Date: 20171222
  Transmission Date: 20180320
  Serious: Yes (Life-Threatening, Hospitalization, Other)
  Sender: FDA-Public Use
  Company Number: US-PFIZER INC-2016458219

PATIENT
  Age: 64 Year
  Sex: Male

DRUGS (3)
  1. HEPARIN SODIUM. [Suspect]
     Active Substance: HEPARIN SODIUM
     Dosage: 6000 IU, UNK
     Route: 040
  2. WARFARIN [Concomitant]
     Active Substance: WARFARIN
  3. HEPARIN SODIUM. [Suspect]
     Active Substance: HEPARIN SODIUM
     Indication: INTERNATIONAL NORMALISED RATIO DECREASED
     Dosage: UNK IU, UNK

REACTIONS (3)
  - Pulseless electrical activity [Recovered/Resolved]
  - Anaphylactoid reaction [Recovering/Resolving]
  - Heparin-induced thrombocytopenia [Recovering/Resolving]
